FAERS Safety Report 16974191 (Version 1)
Quarter: 2019Q4

REPORT INFORMATION
  Report Type: Report from Study
  Country: JP (occurrence: JP)
  Receive Date: 20191030
  Receipt Date: 20191030
  Transmission Date: 20200122
  Serious: Yes (Hospitalization)
  Sender: FDA-Public Use
  Company Number: PHJP2019JP012033

PATIENT
  Age: 4 Year
  Sex: Female
  Weight: 13 kg

DRUGS (21)
  1. BLINDED NO TREATMENT RECEIVED [Suspect]
     Active Substance: INVESTIGATIONAL PRODUCT
     Indication: LEFT VENTRICULAR DYSFUNCTION
  2. BLINDED PLACEBO [Suspect]
     Active Substance: INVESTIGATIONAL PRODUCT
     Indication: CARDIAC FAILURE
     Dosage: CODE NOT BROKEN
     Route: 048
     Dates: start: 20181016
  3. TRICHLORMETHIAZIDE [Concomitant]
     Active Substance: TRICHLORMETHIAZIDE
     Indication: CONGESTIVE CARDIOMYOPATHY
     Dosage: 0.4 MG, BID
     Route: 048
     Dates: start: 20161123
  4. SPIRONOLACTONE. [Concomitant]
     Active Substance: SPIRONOLACTONE
     Indication: CONGESTIVE CARDIOMYOPATHY
     Dosage: 4.6 MG, TID
     Route: 048
     Dates: start: 20170320
  5. SPIRONOLACTONE. [Concomitant]
     Active Substance: SPIRONOLACTONE
     Indication: CARDIAC FAILURE
  6. BLINDED LCZ696 [Suspect]
     Active Substance: SACUBITRIL\VALSARTAN
     Indication: LEFT VENTRICULAR DYSFUNCTION
  7. CARVEDILOL. [Concomitant]
     Active Substance: CARVEDILOL
     Indication: VENTRICULAR EXTRASYSTOLES
  8. BLINDED LCZ696 [Suspect]
     Active Substance: SACUBITRIL\VALSARTAN
     Indication: CARDIAC FAILURE
     Dosage: CODE NOT BROKEN
     Route: 048
     Dates: start: 20181016
  9. FUROSEMIDE. [Concomitant]
     Active Substance: FUROSEMIDE
     Indication: CARDIAC FAILURE
  10. BLINDED LCZ696 [Suspect]
     Active Substance: SACUBITRIL\VALSARTAN
     Indication: CARDIAC FAILURE
     Dosage: CODE NOT BROKEN
     Route: 048
     Dates: start: 20181016
  11. BLINDED LCZ696 [Suspect]
     Active Substance: SACUBITRIL\VALSARTAN
     Indication: CARDIAC FAILURE
     Dosage: CODE NOT BROKEN
     Route: 048
     Dates: start: 20181016
  12. BLINDED PLACEBO [Suspect]
     Active Substance: INVESTIGATIONAL PRODUCT
     Indication: LEFT VENTRICULAR DYSFUNCTION
  13. TRICHLORMETHIAZIDE [Concomitant]
     Active Substance: TRICHLORMETHIAZIDE
     Indication: CARDIAC FAILURE
  14. CARVEDILOL. [Concomitant]
     Active Substance: CARVEDILOL
     Indication: CARDIAC FAILURE
  15. BLINDED NO TREATMENT RECEIVED [Suspect]
     Active Substance: INVESTIGATIONAL PRODUCT
     Indication: CARDIAC FAILURE
     Dosage: CODE NOT BROKEN
     Route: 048
     Dates: start: 20181016
  16. BLINDED ENALAPRIL [Suspect]
     Active Substance: ENALAPRIL
     Indication: LEFT VENTRICULAR DYSFUNCTION
  17. BLINDED LCZ696 [Suspect]
     Active Substance: SACUBITRIL\VALSARTAN
     Indication: LEFT VENTRICULAR DYSFUNCTION
  18. BLINDED LCZ696 [Suspect]
     Active Substance: SACUBITRIL\VALSARTAN
     Indication: LEFT VENTRICULAR DYSFUNCTION
  19. CARVEDILOL. [Concomitant]
     Active Substance: CARVEDILOL
     Indication: CONGESTIVE CARDIOMYOPATHY
     Dosage: 2.375 MG, BID
     Route: 048
     Dates: start: 20180818
  20. BLINDED ENALAPRIL [Suspect]
     Active Substance: ENALAPRIL
     Indication: CARDIAC FAILURE
     Dosage: CODE NOT BROKEN
     Route: 048
     Dates: start: 20181016
  21. FUROSEMIDE. [Concomitant]
     Active Substance: FUROSEMIDE
     Indication: CONGESTIVE CARDIOMYOPATHY
     Dosage: 4.6 MG, TID
     Route: 048
     Dates: start: 20170320

REACTIONS (1)
  - Pneumonia [Recovered/Resolved]

NARRATIVE: CASE EVENT DATE: 20190907
